FAERS Safety Report 18003044 (Version 5)
Quarter: 2020Q4

REPORT INFORMATION
  Report Type: Other
  Country: DE (occurrence: DE)
  Receive Date: 20200710
  Receipt Date: 20201211
  Transmission Date: 20210113
  Serious: Yes (Death, Hospitalization)
  Sender: FDA-Public Use
  Company Number: DE-ROCHE-2637995

PATIENT
  Sex: Male

DRUGS (12)
  1. CARBOPLATIN. [Suspect]
     Active Substance: CARBOPLATIN
     Indication: HYPERTENSION
  2. IFOSFAMIDE. [Suspect]
     Active Substance: IFOSFAMIDE
     Indication: HYPERTENSION
     Dosage: AS PART OF R-DEVIC TREATMENT FOR SEVERAL MONTHS (LAST THERAPY CYCLE WAS ADMINISTERED 2 WEEKS BEFORE
     Route: 065
  3. PIPERACILLIN/TAZOBACTAM [Concomitant]
     Active Substance: PIPERACILLIN SODIUM\TAZOBACTAM SODIUM
     Route: 065
  4. DEXAMETHASONE. [Suspect]
     Active Substance: DEXAMETHASONE
     Indication: DIFFUSE LARGE B-CELL LYMPHOMA
     Dosage: AS PART OF R-DEVIC TREATMENT (FOR SEVERAL MONTHS), THE LAST DOSE WAS ADMINISTERED 2 WEEKS BEFORE SAR
     Route: 065
  5. IFOSFAMIDE. [Suspect]
     Active Substance: IFOSFAMIDE
     Indication: DIFFUSE LARGE B-CELL LYMPHOMA
     Dosage: AS PART OF R-DEVIC TREATMENT FOR SEVERAL MONTHS (LAST THERAPY CYCLE WAS ADMINISTERED 2 WEEKS BEFORE
     Route: 065
  6. CARBOPLATIN. [Suspect]
     Active Substance: CARBOPLATIN
     Indication: DIFFUSE LARGE B-CELL LYMPHOMA
     Dosage: AS PART OF R-DEVIC TREATMENT FOR SEVERAL MONTHS (LAST THERAPY CYCLE WAS ADMINISTERED 2 WEEKS BEFORE
     Route: 065
  7. RITUXIMAB. [Suspect]
     Active Substance: RITUXIMAB
     Indication: DIFFUSE LARGE B-CELL LYMPHOMA
  8. DEXAMETHASONE. [Suspect]
     Active Substance: DEXAMETHASONE
     Indication: HYPERTENSION
     Dosage: AS PART OF R-DEVIC TREATMENT (FOR SEVERAL MONTHS), THE LAST DOSE WAS ADMINISTERED 2 WEEKS BEFORE SAR
     Route: 065
  9. ETOPOSIDE. [Suspect]
     Active Substance: ETOPOSIDE
     Indication: HYPERTENSION
     Dosage: AS PART OF R-DEVIC TREATMENT FOR SEVERAL MONTHS (LAST THERAPY CYCLE WAS ADMINISTERED 2 WEEKS BEFORE
     Route: 065
  10. IBRUTINIB [Suspect]
     Active Substance: IBRUTINIB
     Indication: DIFFUSE LARGE B-CELL LYMPHOMA
     Route: 065
  11. ETOPOSIDE. [Suspect]
     Active Substance: ETOPOSIDE
     Indication: DIFFUSE LARGE B-CELL LYMPHOMA
     Dosage: AS PART OF R-DEVIC TREATMENT FOR SEVERAL MONTHS (LAST THERAPY CYCLE WAS ADMINISTERED 2 WEEKS BEFORE
     Route: 065
  12. RITUXIMAB. [Suspect]
     Active Substance: RITUXIMAB
     Indication: HYPERTENSION
     Dosage: AS PART OF R-DEVIC TREATMENT FOR SEVERAL MONTHS (LAST THERAPY CYCLE WAS ADMINISTERED 2 WEEKS BEFORE
     Route: 065

REACTIONS (5)
  - Intentional product use issue [Unknown]
  - Respiratory failure [Fatal]
  - COVID-19 pneumonia [Fatal]
  - Off label use [Unknown]
  - Pyrexia [Fatal]
